FAERS Safety Report 5304963-1 (Version None)
Quarter: 2007Q2

REPORT INFORMATION
  Report Type: 
  Country: None (occurrence: None)
  Receive Date: 20070423
  Receipt Date: 20070411
  Transmission Date: 20071010
  Serious: Yes (Hospitalization)
  Sender: FDA-Public Use
  Company Number: US-PFIZER INC-2007028642

PATIENT
  Sex: Female
  Weight: 59 kg

DRUGS (5)
  1. SUTENT [Suspect]
     Indication: MALIGNANT MELANOMA
     Route: 048
  2. TEMODAR [Suspect]
     Indication: MALIGNANT MELANOMA
     Route: 048
  3. ZOFRAN [Concomitant]
     Route: 048
  4. LOTREL [Concomitant]
     Dosage: TEXT:5/10-FREQ:DAILY
     Route: 048
  5. LAXATIVES [Concomitant]
     Dosage: TEXT:1 TAB
     Route: 048

REACTIONS (3)
  - ABDOMINAL PAIN [None]
  - DIVERTICULITIS [None]
  - NAUSEA [None]
